FAERS Safety Report 5215068-2 (Version None)
Quarter: 2006Q4

REPORT INFORMATION
  Report Type: 
  Country: None (occurrence: None)
  Receive Date: 20061107
  Receipt Date: 20060719
  Transmission Date: 20070319
  Serious: No
  Sender: FDA-Public Use
  Company Number: 200611449BWH

PATIENT
  Age: 47 Year
  Sex: Male
  Weight: 112.4921 kg

DRUGS (7)
  1. LEVITRA [Suspect]
     Indication: ERECTILE DYSFUNCTION
     Dosage: SEE IMAGE
     Route: 048
  2. GLIPIZIDE [Concomitant]
  3. GEMFIBROZIL [Concomitant]
  4. ACTOS [Concomitant]
  5. DIOVAN [Concomitant]
  6. PRAVACHOL [Concomitant]
  7. SYNTHROID [Concomitant]

REACTIONS (2)
  - ERECTILE DYSFUNCTION [None]
  - SLEEP DISORDER [None]
